FAERS Safety Report 9271799 (Version 1)
Quarter: 2013Q2

REPORT INFORMATION
  Report Type: Spontaneous
  Country: US (occurrence: US)
  Receive Date: 20130506
  Receipt Date: 20130506
  Transmission Date: 20140414
  Serious: No
  Sender: FDA-Public Use
  Company Number: US-TEVA-402889USA

PATIENT
  Age: 45 Year
  Sex: Female
  Weight: 62.2 kg

DRUGS (4)
  1. COPAXONE [Suspect]
     Indication: RELAPSING-REMITTING MULTIPLE SCLEROSIS
     Dosage: 20 MILLIGRAM DAILY;
     Route: 058
     Dates: start: 20090220
  2. ADDERALL XR [Concomitant]
     Indication: FATIGUE
     Dosage: 20 MILLIGRAM DAILY;
     Route: 048
     Dates: start: 20130501
  3. BACTRIM [Concomitant]
     Indication: URINARY TRACT INFECTION
     Route: 048
     Dates: start: 20130408, end: 20130415
  4. VITAMIN D [Concomitant]
     Indication: MEDICAL DIET
     Dosage: 1000 IU (INTERNATIONAL UNIT) DAILY;
     Route: 048

REACTIONS (2)
  - Lymphadenopathy [Not Recovered/Not Resolved]
  - Skin swelling [Not Recovered/Not Resolved]
